FAERS Safety Report 5164948-5 (Version None)
Quarter: 2006Q4

REPORT INFORMATION
  Report Type: 
  Country: None (occurrence: None)
  Receive Date: 20061124
  Receipt Date: 20061110
  Transmission Date: 20070319
  Serious: Yes (Other)
  Sender: FDA-Public Use
  Company Number: 2006140960

PATIENT
  Sex: Female

DRUGS (5)
  1. XALATAN [Suspect]
     Dosage: 1 DROP, INTRAOCULAR
     Route: 031
     Dates: start: 20061023
  2. NORVASC [Concomitant]
  3. DOXAZOSIN MESYLATE [Concomitant]
  4. APOPLON (RESERPINE) [Concomitant]
  5. CALSLOT (MANIDIPINE HYDROCHLORIDE) [Concomitant]

REACTIONS (1)
  - BLOOD PRESSURE SYSTOLIC INCREASED [None]
